FAERS Safety Report 8308407-7 (Version None)
Quarter: 2012Q2

REPORT INFORMATION
  Report Type: 
  Country: None (occurrence: None)
  Receive Date: 20120424
  Receipt Date: 20120417
  Transmission Date: 20120825
  Serious: Yes (Hospitalization)
  Sender: FDA-Public Use
  Company Number: JP-MERCK-1112USA01960

PATIENT
  Age: 86 Year
  Sex: Female

DRUGS (4)
  1. JANUVIA [Suspect]
     Route: 048
  2. PEPCID [Concomitant]
     Route: 048
  3. HYZAAR [Suspect]
     Route: 048
  4. ALSETIN [Concomitant]
     Route: 048

REACTIONS (2)
  - BLOOD CREATINE PHOSPHOKINASE INCREASED [None]
  - MUSCULAR WEAKNESS [None]
